FAERS Safety Report 18601870 (Version 1)
Quarter: 2020Q4

REPORT INFORMATION
  Report Type: Spontaneous
  Country: LT (occurrence: LT)
  Receive Date: 20201210
  Receipt Date: 20201210
  Transmission Date: 20210114
  Serious: Yes (Life-Threatening)
  Sender: FDA-Public Use
  Company Number: LT-MYLANLABS-2020M1100702

PATIENT
  Sex: Male

DRUGS (4)
  1. IBUPROFEN. [Suspect]
     Active Substance: IBUPROFEN
     Indication: PATENT DUCTUS ARTERIOSUS
     Dosage: UNK
  2. IRON [Suspect]
     Active Substance: IRON
     Indication: ANAEMIA
     Dosage: UNK
  3. VITAMIN D                          /00107901/ [Suspect]
     Active Substance: ERGOCALCIFEROL
     Indication: VITAMIN D DEFICIENCY
     Dosage: UNK
  4. FOLIC ACID GENERIC [Suspect]
     Active Substance: FOLIC ACID
     Indication: ANAEMIA
     Dosage: UNK

REACTIONS (1)
  - Drug ineffective [Unknown]
